FAERS Safety Report 5375625-X (Version None)
Quarter: 2007Q2

REPORT INFORMATION
  Report Type: 
  Country: None (occurrence: None)
  Receive Date: 20070629
  Receipt Date: 20070614
  Transmission Date: 20071010
  Serious: No
  Sender: FDA-Public Use
  Company Number: 015065

PATIENT
  Age: 41 Year
  Sex: Female
  Weight: 86.2 kg

DRUGS (5)
  1. CLARAVIS [Suspect]
     Indication: ACNE
     Dosage: SEE IMAGE
     Route: 048
     Dates: start: 20070319, end: 20070509
  2. CLARAVIS [Suspect]
     Indication: HIDRADENITIS
     Dosage: SEE IMAGE
     Route: 048
     Dates: start: 20070319, end: 20070509
  3. CLARAVIS [Suspect]
     Indication: ACNE
     Dosage: SEE IMAGE
     Route: 048
     Dates: start: 20070510, end: 20070614
  4. CLARAVIS [Suspect]
     Indication: HIDRADENITIS
     Dosage: SEE IMAGE
     Route: 048
     Dates: start: 20070510, end: 20070614
  5. ADVAIR DISKUS 100/50 [Concomitant]

REACTIONS (1)
  - GALLBLADDER OPERATION [None]
